FAERS Safety Report 20442157 (Version 1)
Quarter: 2022Q1

REPORT INFORMATION
  Report Type: Spontaneous
  Country: US (occurrence: US)
  Receive Date: 20220208
  Receipt Date: 20220208
  Transmission Date: 20220423
  Serious: No
  Sender: FDA-Public Use
  Company Number: US-GLENMARK PHARMACEUTICALS-2021GMK067430

PATIENT

DRUGS (5)
  1. TELMISARTAN [Suspect]
     Active Substance: TELMISARTAN
     Indication: Hypertension
     Dosage: 60 MILLIGRAM, QD (40 MG IN THE MORNING AND 20 MG IN THE EVENING)
     Route: 065
  2. TELMISARTAN [Suspect]
     Active Substance: TELMISARTAN
     Indication: Hypertension
     Dosage: 60 MILLIGRAM, QD (40 MG IN THE MORNING AND 20 MG IN THE EVENING)
     Route: 065
  3. TELMISARTAN [Suspect]
     Active Substance: TELMISARTAN
     Dosage: 80 MILLIGRAM, QD (20 MG IN MORNING AND 60 MG IN NIGHT) (PATIENT TOOK 20 MG TWICE DAILY)
     Route: 065
  4. DIETARY SUPPLEMENT [Concomitant]
     Active Substance: DIETARY SUPPLEMENT
     Indication: Stress
     Dosage: UNK
     Route: 065
  5. CHAMOMILE [MATRICARIA RECUTITA] [Concomitant]
     Indication: Stress
     Dosage: UNK
     Route: 065

REACTIONS (2)
  - Blood pressure increased [Unknown]
  - Product quality issue [Unknown]
